FAERS Safety Report 5582656-3 (Version None)
Quarter: 2008Q1

REPORT INFORMATION
  Report Type: 
  Country: None (occurrence: None)
  Receive Date: 20080107
  Receipt Date: 20071205
  Transmission Date: 20080703
  Serious: No
  Sender: FDA-Public Use
  Company Number: US-BAYER-200713871BWH

PATIENT
  Age: 59 Year
  Sex: Female

DRUGS (7)
  1. AVELOX [Suspect]
     Indication: SINUSITIS
     Dosage: TOTAL DAILY DOSE: 400 MG  UNIT DOSE: 400 MG
     Route: 048
  2. AVELOX [Suspect]
     Dosage: UNIT DOSE: 400 MG
     Route: 048
  3. TRIAMTERENE [Concomitant]
  4. SYNTHROID [Concomitant]
  5. ATENOLOL [Concomitant]
  6. PREVACID [Concomitant]
  7. CALCIUM [Concomitant]

REACTIONS (4)
  - BLOOD CALCIUM INCREASED [None]
  - HYPERSENSITIVITY [None]
  - PRURITUS [None]
  - RASH MORBILLIFORM [None]
